FAERS Safety Report 4928189-6 (Version None)
Quarter: 2006Q1

REPORT INFORMATION
  Report Type: 
  Country: None (occurrence: None)
  Receive Date: 20060223
  Receipt Date: 20060206
  Transmission Date: 20060701
  Serious: No
  Sender: FDA-Public Use
  Company Number: GB200602001164

PATIENT
  Age: 39 Year
  Sex: Male

DRUGS (2)
  1. OLANZAPINE [Suspect]
     Dosage: 5 MG, DAILY (1/D), ORAL
     Route: 048
     Dates: end: 20051221
  2. CLOZAPINE [Concomitant]

REACTIONS (1)
  - NEUTROPHIL COUNT DECREASED [None]
